FAERS Safety Report 8571300-9 (Version None)
Quarter: 2012Q3

REPORT INFORMATION
  Report Type: 
  Country: None (occurrence: None)
  Receive Date: 20120806
  Receipt Date: 20120727
  Transmission Date: 20120928
  Serious: Yes (Hospitalization)
  Sender: FDA-Public Use
  Company Number: US-ABBOTT-12P-163-0962001-00

PATIENT
  Sex: Female
  Weight: 59.02 kg

DRUGS (4)
  1. METHOTREXATE [Concomitant]
     Indication: RHEUMATOID ARTHRITIS
  2. RAMPARIL [Concomitant]
     Indication: HYPERTENSION
  3. FOLIC ACID [Concomitant]
     Indication: RHEUMATOID ARTHRITIS
  4. HUMIRA [Suspect]
     Indication: RHEUMATOID ARTHRITIS
     Dosage: MISSED ONE DOSE
     Dates: start: 20110601

REACTIONS (4)
  - BENIGN LUNG NEOPLASM [None]
  - DRUG DOSE OMISSION [None]
  - ARTHRALGIA [None]
  - RHEUMATOID ARTHRITIS [None]
